FAERS Safety Report 10019012 (Version 1)
Quarter: 2014Q1

REPORT INFORMATION
  Report Type: Spontaneous
  Country: US (occurrence: US)
  Receive Date: 20140318
  Receipt Date: 20140318
  Transmission Date: 20141002
  Serious: No
  Sender: FDA-Public Use
  Company Number: US-JNJFOC-20140303646

PATIENT
  Sex: 0

DRUGS (2)
  1. FENTANYL [Suspect]
     Indication: PAIN
     Route: 062
  2. PERCOCET [Concomitant]
     Indication: PAIN

REACTIONS (2)
  - Wrong technique in drug usage process [Unknown]
  - Drug ineffective [Unknown]
